FAERS Safety Report 24967699 (Version 2)
Quarter: 2025Q1

REPORT INFORMATION
  Report Type: Spontaneous
  Country: DE (occurrence: DE)
  Receive Date: 20250214
  Receipt Date: 20250224
  Transmission Date: 20250408
  Serious: Yes (Other)
  Sender: INTERCEPT PHARMACEUTICALS
  Company Number: DE-ADVANZ PHARMA-202502000820

PATIENT

DRUGS (1)
  1. OCALIVA [Suspect]
     Active Substance: OBETICHOLIC ACID
     Indication: Primary biliary cholangitis
     Dosage: 5 MG, QD  (OCALIVA, IN THE EVENING)
     Route: 065
     Dates: start: 2020

REACTIONS (2)
  - Lymphoma [Unknown]
  - Myelodysplastic syndrome [Unknown]

NARRATIVE: CASE EVENT DATE: 20230101
